FAERS Safety Report 19645111 (Version 1)
Quarter: 2021Q3

REPORT INFORMATION
  Report Type: Spontaneous
  Country: US (occurrence: US)
  Receive Date: 20210802
  Receipt Date: 20210802
  Transmission Date: 20211014
  Serious: No
  Sender: FDA-Public Use
  Company Number: US-TEVA-2020-US-1813439

PATIENT
  Age: 73 Year
  Sex: Female
  Weight: 53.97 kg

DRUGS (1)
  1. BUTRANS [Suspect]
     Active Substance: BUPRENORPHINE
     Dosage: 5 MCG/HR
     Route: 062

REACTIONS (5)
  - Withdrawal syndrome [Unknown]
  - Drug ineffective [Unknown]
  - Middle insomnia [Unknown]
  - Feeling jittery [Unknown]
  - Skin discomfort [Unknown]

NARRATIVE: CASE EVENT DATE: 20200726
